FAERS Safety Report 8983032 (Version 1)
Quarter: 2012Q4

REPORT INFORMATION
  Report Type: 
  Country: MW (occurrence: MW)
  Receive Date: 20121224
  Receipt Date: 20121224
  Transmission Date: 20130627
  Serious: Yes (Other)
  Sender: FDA-Public Use
  Company Number: PHHY2012MW117664

PATIENT
  Age: 30 Year
  Sex: Male

DRUGS (1)
  1. PENICILLIN G SODIUM [Suspect]
     Route: 042
     Dates: start: 201211, end: 201211

REACTIONS (3)
  - Hypersensitivity [Unknown]
  - Hyperhidrosis [Unknown]
  - Heart rate increased [Unknown]
